FAERS Safety Report 4515252-7 (Version None)
Quarter: 2004Q4

REPORT INFORMATION
  Report Type: 
  Country: None (occurrence: None)
  Receive Date: 20041130
  Receipt Date: 20041130
  Transmission Date: 20050328
  Serious: Yes (Life-Threatening, Hospitalization)
  Sender: FDA-Public Use
  Company Number: None

PATIENT
  Age: 23 Year
  Sex: Male

DRUGS (5)
  1. HALOPERIDOL [Suspect]
     Indication: AGGRESSION
     Dosage: 10 MG IM X 2
     Route: 030
     Dates: start: 20040913
  2. HALOPERIDOL [Suspect]
     Indication: AGITATION
     Dosage: 10 MG IM X 2
     Route: 030
     Dates: start: 20040913
  3. QUETIAPINE [Suspect]
     Indication: AFFECTIVE DISORDER
     Dosage: 200 MG [PRIOR TO ADMIT]
     Dates: start: 20040912
  4. PAROXETINE [Concomitant]
  5. SIMVASTATIN [Concomitant]

REACTIONS (9)
  - AGGRESSION [None]
  - AGITATION [None]
  - BLOOD CREATINE PHOSPHOKINASE INCREASED [None]
  - BLOOD PRESSURE INCREASED [None]
  - CHEST PAIN [None]
  - ELECTROCARDIOGRAM QT CORRECTED INTERVAL PROLONGED [None]
  - HEART RATE INCREASED [None]
  - NEUROLEPTIC MALIGNANT SYNDROME [None]
  - WHITE BLOOD CELL COUNT INCREASED [None]
